FAERS Safety Report 22121441 (Version 2)
Quarter: 2023Q1

REPORT INFORMATION
  Report Type: Spontaneous
  Country: US (occurrence: US)
  Receive Date: 20230321
  Receipt Date: 20230331
  Transmission Date: 20230418
  Serious: Yes (Death, Life-Threatening, Other)
  Sender: FDA-Public Use
  Company Number: US-FreseniusKabi-FK202303493

PATIENT
  Age: 29 Year
  Sex: Male
  Weight: 88.6 kg

DRUGS (3)
  1. XYLOCAINE MPF WITH EPINEPHRINE [Suspect]
     Active Substance: EPINEPHRINE BITARTRATE\LIDOCAINE HYDROCHLORIDE
     Indication: Sedation
  2. PROPOFOL [Concomitant]
     Active Substance: PROPOFOL
     Indication: Intraoperative care
  3. CETIRIZINE [Concomitant]
     Active Substance: CETIRIZINE HYDROCHLORIDE
     Indication: Product used for unknown indication
     Route: 048

REACTIONS (3)
  - Cardiac failure [Fatal]
  - Circulatory collapse [Fatal]
  - Off label use [Unknown]

NARRATIVE: CASE EVENT DATE: 20230126
